FAERS Safety Report 12853991 (Version 1)
Quarter: 2016Q4

REPORT INFORMATION
  Report Type: Spontaneous
  Country: US (occurrence: US)
  Receive Date: 20161017
  Receipt Date: 20161017
  Transmission Date: 20170207
  Serious: No
  Sender: FDA-Public Use
  Company Number: US-ASTRAZENECA-2016SF06532

PATIENT
  Sex: Female
  Weight: 88.2 kg

DRUGS (2)
  1. ANASTRAZOLE [Suspect]
     Active Substance: ANASTROZOLE
     Indication: BREAST CANCER FEMALE
     Route: 048
     Dates: start: 20160425, end: 20160730
  2. CONTRACEPTIVE [Concomitant]
     Active Substance: UNSPECIFIED INGREDIENT
     Dosage: 10.0MG UNKNOWN

REACTIONS (10)
  - Hypoaesthesia [Unknown]
  - Pain in extremity [Unknown]
  - Limb discomfort [Unknown]
  - Arthralgia [Unknown]
  - Weight loss poor [Unknown]
  - Weight increased [Unknown]
  - Weight decreased [Unknown]
  - Heart rate decreased [Unknown]
  - Body height decreased [Unknown]
  - Visual acuity reduced [Unknown]
